FAERS Safety Report 5622394-1 (Version None)
Quarter: 2008Q1

REPORT INFORMATION
  Report Type: 
  Country: None (occurrence: None)
  Receive Date: 20080211
  Receipt Date: 20080204
  Transmission Date: 20080703
  Serious: Yes (Hospitalization)
  Sender: FDA-Public Use
  Company Number: US-GILEAD-2008-0014885

PATIENT
  Sex: Male

DRUGS (10)
  1. LETAIRIS [Suspect]
     Indication: PULMONARY HYPERTENSION
     Dates: start: 20070913, end: 20080114
  2. ALBUTEROL SULFATE [Concomitant]
  3. ATROVENT [Concomitant]
  4. OSCAL [Concomitant]
     Route: 048
  5. PROTONIX [Concomitant]
     Route: 048
  6. ZOCOR [Concomitant]
     Route: 048
  7. EFFEXOR XR [Concomitant]
     Route: 048
  8. CARDIZEM CD [Concomitant]
     Route: 048
  9. PREDNISONE TAB [Concomitant]
     Route: 048
  10. OXYGEN [Concomitant]

REACTIONS (6)
  - ABDOMINAL PAIN UPPER [None]
  - BACK PAIN [None]
  - CHEST PAIN [None]
  - DYSPNOEA [None]
  - HYPOXIA [None]
  - PULMONARY FIBROSIS [None]
